FAERS Safety Report 21698247 (Version 4)
Quarter: 2023Q2

REPORT INFORMATION
  Report Type: Spontaneous
  Country: CA (occurrence: None)
  Receive Date: 20221208
  Receipt Date: 20230623
  Transmission Date: 20230722
  Serious: Yes (Other)
  Sender: FDA-Public Use
  Company Number: CA-ROCHE-3232886

PATIENT
  Age: 30 Year
  Sex: Female

DRUGS (13)
  1. RITUXIMAB [Suspect]
     Active Substance: RITUXIMAB
     Indication: Antisynthetase syndrome
     Dosage: CONCENTRATE FOR SOLUTION FOR INFUSION
     Route: 042
  2. RITUXIMAB [Suspect]
     Active Substance: RITUXIMAB
     Dosage: CONCENTRATE FOR SOLUTION FOR INFUSION
     Route: 042
  3. RITUXIMAB [Suspect]
     Active Substance: RITUXIMAB
     Dosage: CONCENTRATE FOR SOLUTION FOR INFUSION
     Route: 042
  4. ACETAMINOPHEN [Concomitant]
     Active Substance: ACETAMINOPHEN
     Route: 048
  5. CALCIUM [Concomitant]
     Active Substance: CALCIUM
     Route: 065
  6. DIPHENHYDRAMINE HYDROCHLORIDE [Concomitant]
     Active Substance: DIPHENHYDRAMINE HYDROCHLORIDE
     Route: 048
  7. ERGOCALCIFEROL [Concomitant]
     Active Substance: ERGOCALCIFEROL
     Route: 065
  8. FOLIC ACID [Concomitant]
     Active Substance: FOLIC ACID
     Route: 065
  9. RITUXIMAB [Concomitant]
     Active Substance: RITUXIMAB
     Route: 065
  10. HYDROXYCHLOROQUINE [Concomitant]
     Active Substance: HYDROXYCHLOROQUINE
  11. METHOTREXATE [Concomitant]
     Active Substance: METHOTREXATE
  12. PREDNISONE [Concomitant]
     Active Substance: PREDNISONE
  13. METHYLPREDNISOLONE [Concomitant]
     Active Substance: METHYLPREDNISOLONE
     Indication: Product used for unknown indication
     Route: 042

REACTIONS (24)
  - COVID-19 [Recovered/Resolved]
  - Ear infection [Recovered/Resolved]
  - Ear pain [Recovered/Resolved]
  - Eye infection [Recovered/Resolved]
  - Hypothermia [Recovered/Resolved]
  - Nasal congestion [Recovered/Resolved]
  - Off label use [Unknown]
  - Abdominal discomfort [Recovered/Resolved]
  - Abdominal pain upper [Recovered/Resolved]
  - Acne [Recovered/Resolved]
  - Bladder discomfort [Recovered/Resolved]
  - Diarrhoea [Recovered/Resolved]
  - Gastrooesophageal reflux disease [Recovered/Resolved]
  - Mouth ulceration [Recovered/Resolved]
  - Ovarian cyst [Recovered/Resolved]
  - Pneumonia [Recovered/Resolved]
  - Urine odour abnormal [Recovered/Resolved]
  - Abdominal pain [Recovered/Resolved]
  - Arthralgia [Recovered/Resolved]
  - Sinusitis [Recovered/Resolved]
  - Weight decreased [Recovered/Resolved]
  - Upper respiratory tract infection [Recovered/Resolved]
  - Toothache [Recovered/Resolved]
  - Jaw disorder [Recovered/Resolved]
